FAERS Safety Report 10753836 (Version 2)
Quarter: 2015Q1

REPORT INFORMATION
  Report Type: Report from Study
  Country: CA (occurrence: None)
  Receive Date: 20150129
  Receipt Date: 20150205
  Transmission Date: 20150721
  Serious: Yes (Hospitalization)
  Sender: FDA-Public Use
  Company Number: 2015FE00108

PATIENT
  Age: 52 Year
  Sex: Male

DRUGS (12)
  1. SPIROTON (SPIRONOLACTONE) [Concomitant]
  2. LIPITOR [Concomitant]
     Active Substance: ATORVASTATIN CALCIUM
  3. TRAJENTA (LINAGLIPTIN) [Concomitant]
     Active Substance: LINAGLIPTIN
  4. SLOW K (POTASSIUM CHLORIDE) [Concomitant]
  5. MAVIK (TRANDOLAPRIL) [Concomitant]
  6. AMLODIPINE [Concomitant]
     Active Substance: AMLODIPINE BESYLATE
  7. TUROS (ROKITAMYCIN) [Concomitant]
  8. COLACE [Concomitant]
     Active Substance: DOCUSATE SODIUM
  9. ZAROXOLYN (METOLAZONE) [Concomitant]
  10. TERAZOSIN [Concomitant]
     Active Substance: TERAZOSIN\TERAZOSIN HYDROCHLORIDE
  11. DEGARELIX (DEGARELIX) POWDER AND SOLVENT FOR SOLUTION FOR INJECTION [Suspect]
     Active Substance: DEGARELIX
     Indication: PROSTATE CANCER
     Route: 058
     Dates: start: 20140707
  12. METFORMIN [Concomitant]
     Active Substance: METFORMIN HYDROCHLORIDE

REACTIONS (4)
  - Fluid retention [None]
  - Renal impairment [None]
  - Oedema peripheral [None]
  - Cardiac arrest [None]
